FAERS Safety Report 8715102 (Version 3)
Quarter: 2013Q2

REPORT INFORMATION
  Report Type: Spontaneous
  Country: JP (occurrence: JP)
  Receive Date: 20120809
  Receipt Date: 20130623
  Transmission Date: 20140414
  Serious: Yes (Other)
  Sender: FDA-Public Use
  Company Number: JP-ALLERGAN-1210753US

PATIENT
  Age: 84 Year
  Sex: Female

DRUGS (3)
  1. LUMIGAN [Suspect]
     Indication: NORMAL TENSION GLAUCOMA
     Dosage: 1 GTT OU, QD
     Route: 047
     Dates: start: 20110715, end: 20120131
  2. LUMIGAN [Suspect]
     Dosage: UNK
     Dates: start: 20120302
  3. TIMOPTOL XE [Concomitant]
     Indication: PRODUCT USED FOR UNKNOWN INDICATION

REACTIONS (5)
  - Uveitis [Recovered/Resolved with Sequelae]
  - Corneal erosion [Recovered/Resolved]
  - Vision blurred [Recovering/Resolving]
  - Visual field defect [Recovering/Resolving]
  - Blepharitis [Recovering/Resolving]
